FAERS Safety Report 7412137-3 (Version None)
Quarter: 2011Q2

REPORT INFORMATION
  Report Type: 
  Country: None (occurrence: None)
  Receive Date: 20110413
  Receipt Date: 20110321
  Transmission Date: 20111010
  Serious: Yes (Hospitalization, Other)
  Sender: FDA-Public Use
  Company Number: US-BAYER-2010-002681

PATIENT
  Age: 20 Year
  Sex: Female
  Weight: 63.492 kg

DRUGS (3)
  1. YAZ [Suspect]
     Indication: PRODUCT USED FOR UNKNOWN INDICATION
     Dosage: UNK
     Route: 048
     Dates: start: 20080301, end: 20080701
  2. ZOLOFT [Concomitant]
     Dosage: UNK
     Dates: start: 20070713
  3. WELLBUTRIN XL [Concomitant]
     Dosage: 300 MG, UNK
     Dates: start: 20071101

REACTIONS (2)
  - THROMBOSIS [None]
  - PULMONARY EMBOLISM [None]
